FAERS Safety Report 8806536 (Version 1)
Quarter: 2012Q4

REPORT INFORMATION
  Report Type: 
  Country: CN (occurrence: CN)
  Receive Date: 20120925
  Receipt Date: 20120925
  Transmission Date: 20130627
  Serious: Yes (Other)
  Sender: FDA-Public Use
  Company Number: CN-BAYER-2012-098065

PATIENT
  Age: 56 Year
  Sex: Male

DRUGS (1)
  1. AVELOX [Suspect]
     Indication: INFECTION
     Dosage: 0.4 g, QD
     Dates: start: 20110222, end: 20110224

REACTIONS (1)
  - Hypoglycaemic coma [Recovering/Resolving]
